FAERS Safety Report 17494299 (Version 1)
Quarter: 2020Q1

REPORT INFORMATION
  Report Type: Spontaneous
  Country: US (occurrence: US)
  Receive Date: 20200303
  Receipt Date: 20200303
  Transmission Date: 20200409
  Serious: No
  Sender: FDA-Public Use
  Company Number: US-AMNEAL PHARMACEUTICALS-2019-AMRX-01887

PATIENT
  Sex: Male
  Weight: 125 kg

DRUGS (2)
  1. RYTARY [Suspect]
     Active Substance: CARBIDOPA\LEVODOPA
     Indication: PARKINSON^S DISEASE
     Dosage: 2 DOSAGE FORM, TID
     Route: 048
     Dates: start: 2017
  2. RASAGILINE. [Concomitant]
     Active Substance: RASAGILINE
     Indication: PARKINSON^S DISEASE
     Dosage: 1 MILLIGRAM, 1 CAPSULE ONCE A DAY
     Route: 065
     Dates: start: 2017

REACTIONS (2)
  - Somnolence [Recovered/Resolved]
  - Dizziness postural [Recovered/Resolved]

NARRATIVE: CASE EVENT DATE: 2017
